FAERS Safety Report 24167294 (Version 2)
Quarter: 2024Q3

REPORT INFORMATION
  Report Type: Other
  Country: JP (occurrence: JP)
  Receive Date: 20240802
  Receipt Date: 20240819
  Transmission Date: 20241017
  Serious: Yes (Death, Life-Threatening, Hospitalization)
  Sender: EMD SERONO INC
  Company Number: JP-Merck Healthcare KGaA-2024040176

PATIENT
  Age: 45 Year
  Sex: Female
  Weight: 90 kg

DRUGS (2)
  1. METGLUCO [Suspect]
     Active Substance: METFORMIN HYDROCHLORIDE
     Indication: Diabetes mellitus
     Dosage: REGULARLY TAKING 2 G/DAY OF METFORMIN AND HAD INGESTED APPROXIMATELY 71 G
  2. METGLUCO [Suspect]
     Active Substance: METFORMIN HYDROCHLORIDE
     Dosage: REGULARLY TAKING 2 G/DAY OF METFORMIN AND HAD INGESTED APPROXIMATELY 71 G

REACTIONS (7)
  - Circulatory collapse [Fatal]
  - Toxicity to various agents [Recovering/Resolving]
  - Distributive shock [Unknown]
  - Cardiac arrest [Unknown]
  - Lactic acidosis [Recovering/Resolving]
  - Hypoxic-ischaemic encephalopathy [Unknown]
  - Overdose [Unknown]
